FAERS Safety Report 5691404-8 (Version None)
Quarter: 2008Q2

REPORT INFORMATION
  Report Type: 
  Country: None (occurrence: None)
  Receive Date: 20080402
  Receipt Date: 20080212
  Transmission Date: 20081010
  Serious: No
  Sender: FDA-Public Use
  Company Number: US-BAYER-200814027NA

PATIENT
  Age: 55 Year
  Sex: Female

DRUGS (1)
  1. ULTRAVIST -300 SINGLE DOSE [Suspect]
     Indication: COMPUTERISED TOMOGRAM
     Dosage: TOTAL DAILY DOSE: 1 ML
     Route: 042
     Dates: start: 20080208, end: 20080208

REACTIONS (1)
  - URTICARIA [None]
